FAERS Safety Report 5603389-0 (Version None)
Quarter: 2008Q1

REPORT INFORMATION
  Report Type: 
  Country: None (occurrence: None)
  Receive Date: 20080123
  Receipt Date: 20080103
  Transmission Date: 20080703
  Serious: No
  Sender: FDA-Public Use
  Company Number: 8028911

PATIENT
  Sex: Female

DRUGS (1)
  1. EQUASYM [Suspect]
     Dosage: 10 MG /D
     Dates: start: 20061201

REACTIONS (4)
  - APATHY [None]
  - FATIGUE [None]
  - SOCIAL AVOIDANT BEHAVIOUR [None]
  - TIC [None]
